FAERS Safety Report 12185369 (Version 2)
Quarter: 2016Q2

REPORT INFORMATION
  Report Type: Spontaneous
  Country: JP (occurrence: JP)
  Receive Date: 20160316
  Receipt Date: 20160512
  Transmission Date: 20160815
  Serious: Yes (Life-Threatening)
  Sender: FDA-Public Use
  Company Number: JP-MYLANLABS-2016M1010640

PATIENT

DRUGS (6)
  1. ROPIVACAINE [Concomitant]
     Active Substance: ROPIVACAINE
     Indication: MAINTENANCE OF ANAESTHESIA
     Dosage: 0.5% ; 6 ML/HR
     Route: 065
  2. PROPOFOL. [Concomitant]
     Active Substance: PROPOFOL
     Indication: INDUCTION OF ANAESTHESIA
     Dosage: 70 MG
     Route: 065
  3. ROCURONIUM BROMIDE. [Concomitant]
     Active Substance: ROCURONIUM BROMIDE
     Indication: INDUCTION OF ANAESTHESIA
     Dosage: 40 MG
     Route: 065
  4. SEVOFRANE MARUISHI [Suspect]
     Active Substance: SEVOFLURANE
     Indication: MAINTENANCE OF ANAESTHESIA
     Dosage: 1-1.5%
     Route: 065
  5. FENTANYL. [Concomitant]
     Active Substance: FENTANYL
     Indication: INDUCTION OF ANAESTHESIA
     Dosage: 50 MICROG
     Route: 065
  6. DICLOFENAC [Suspect]
     Active Substance: DICLOFENAC
     Indication: HYPERTHERMIA MALIGNANT
     Dosage: 25 MG
     Route: 054

REACTIONS (6)
  - Hyperthermia malignant [Recovered/Resolved]
  - Coma [Not Recovered/Not Resolved]
  - Hypoxic-ischaemic encephalopathy [Unknown]
  - Cardiac arrest [Recovered/Resolved]
  - Seizure [Unknown]
  - Shock [Unknown]
